FAERS Safety Report 6885500-7 (Version None)
Quarter: 2010Q3

REPORT INFORMATION
  Report Type: 
  Country: None (occurrence: None)
  Receive Date: 20100729
  Receipt Date: 20080310
  Transmission Date: 20110219
  Serious: No
  Sender: FDA-Public Use
  Company Number: US-PFIZER INC-2008019581

PATIENT
  Sex: Male
  Weight: 97.727 kg

DRUGS (3)
  1. CELEBREX [Suspect]
     Indication: MONARTHRITIS
     Dates: start: 20070701
  2. QUINAPRIL [Concomitant]
     Indication: BLOOD PRESSURE ABNORMAL
  3. LIPITOR [Concomitant]
     Indication: BLOOD CHOLESTEROL

REACTIONS (2)
  - DRUG DOSE OMISSION [None]
  - DRUG INEFFECTIVE [None]
